FAERS Safety Report 7530954-6 (Version None)
Quarter: 2011Q2

REPORT INFORMATION
  Report Type: 
  Country: None (occurrence: None)
  Receive Date: 20110531
  Receipt Date: 20110517
  Transmission Date: 20111010
  Serious: Yes (Other)
  Sender: FDA-Public Use
  Company Number: FK201101062

PATIENT
  Age: 58 Year
  Sex: Female

DRUGS (4)
  1. LEFLUNOMIDE [Suspect]
     Indication: RHEUMATOID ARTHRITIS
  2. ADALIMUMAB (ADALIMUMAB) (ADALIMUMAB) [Suspect]
     Indication: RHEUMATOID ARTHRITIS
  3. CORTICOSTEROIDS (CORTICOSTEROIDS) (CORTICOSTEOROIDS) [Suspect]
     Indication: RHEUMATOID ARTHRITIS
  4. METHOTREXATE [Suspect]
     Indication: RHEUMATOID ARTHRITIS

REACTIONS (9)
  - PNEUMOCYSTIS JIROVECI PNEUMONIA [None]
  - LYMPHADENOPATHY [None]
  - CENTRAL NERVOUS SYSTEM LESION [None]
  - NERVOUS SYSTEM DISORDER [None]
  - DYSPNOEA [None]
  - BRAIN OEDEMA [None]
  - PYREXIA [None]
  - LUNG NEOPLASM [None]
  - DISSEMINATED TUBERCULOSIS [None]
